FAERS Safety Report 5723520-6 (Version None)
Quarter: 2008Q2

REPORT INFORMATION
  Report Type: 
  Country: None (occurrence: None)
  Receive Date: 20080430
  Receipt Date: 20080421
  Transmission Date: 20081010
  Serious: Yes (Hospitalization)
  Sender: FDA-Public Use
  Company Number: US-KINGPHARMUSA00001-K200800454

PATIENT

DRUGS (3)
  1. EPIPEN [Suspect]
     Indication: ALLERGY TO ARTHROPOD STING
     Dosage: .3 ML, UNK
     Route: 030
  2. EPINEPHRINE [Suspect]
     Indication: ALLERGY TO ARTHROPOD STING
     Dosage: 1 ML, UNK
     Route: 042
  3. EPINEPHRINE [Suspect]
     Dosage: .5 ML, UNK
     Route: 030

REACTIONS (9)
  - CARDIAC DISORDER [None]
  - CARDIAC ENZYMES INCREASED [None]
  - CARDIOMYOPATHY [None]
  - CHEST PAIN [None]
  - DILATATION VENTRICULAR [None]
  - ELECTROCARDIOGRAM ABNORMAL [None]
  - HEART INJURY [None]
  - HYPOKALAEMIA [None]
  - LOSS OF CONSCIOUSNESS [None]
